FAERS Safety Report 5498645-3 (Version None)
Quarter: 2007Q4

REPORT INFORMATION
  Report Type: 
  Country: None (occurrence: None)
  Receive Date: 20071024
  Receipt Date: 20071012
  Transmission Date: 20080405
  Serious: Yes (Death)
  Sender: FDA-Public Use
  Company Number: 2007AL004360

PATIENT
  Age: 64 Year
  Sex: Female

DRUGS (2)
  1. SERTRALINE HYDROCHLORIDE [Suspect]
  2. DIAZEPAM [Suspect]

REACTIONS (3)
  - COMPLETED SUICIDE [None]
  - DROWNING [None]
  - INTENTIONAL OVERDOSE [None]
